FAERS Safety Report 17520620 (Version 2)
Quarter: 2020Q2

REPORT INFORMATION
  Report Type: Spontaneous
  Country: US (occurrence: US)
  Receive Date: 20200310
  Receipt Date: 20200402
  Transmission Date: 20200713
  Serious: No
  Sender: FDA-Public Use
  Company Number: US-PFIZER INC-2020104303

PATIENT
  Age: 52 Year
  Sex: Female

DRUGS (1)
  1. MORPHINE SULFATE. [Suspect]
     Active Substance: MORPHINE SULFATE
     Dosage: UNK

REACTIONS (2)
  - Chest discomfort [Unknown]
  - Drug hypersensitivity [Unknown]
